FAERS Safety Report 19655212 (Version 3)
Quarter: 2022Q2

REPORT INFORMATION
  Report Type: Spontaneous
  Country: JP (occurrence: JP)
  Receive Date: 20210804
  Receipt Date: 20220428
  Transmission Date: 20220721
  Serious: Yes (Death, Life-Threatening, Hospitalization, Other)
  Sender: FDA-Public Use
  Company Number: JP-ASTELLAS-2020JP020920

PATIENT
  Age: 71 Year
  Sex: Male

DRUGS (10)
  1. TACROLIMUS [Suspect]
     Active Substance: TACROLIMUS
     Indication: Renal transplant
     Dosage: 2 MG/DAY, UNKNOWN FREQ.
     Route: 048
  2. TACROLIMUS [Suspect]
     Active Substance: TACROLIMUS
     Dosage: UNK UNK, UNKNOWN FREQ.
     Route: 048
  3. CELLCEPT [Suspect]
     Active Substance: MYCOPHENOLATE MOFETIL
     Indication: Renal transplant
     Dosage: 1000 MG/DAY, UNKNOWN FREQ.
     Route: 048
  4. CELLCEPT [Suspect]
     Active Substance: MYCOPHENOLATE MOFETIL
     Dosage: UNK, UNKNOWN FREQ.
     Route: 048
  5. MEDROL [Suspect]
     Active Substance: METHYLPREDNISOLONE
     Indication: Renal transplant
     Dosage: 4 MG/DAY, UNKNOWN FREQ.
     Route: 048
  6. RITUXIMAB [Concomitant]
     Active Substance: RITUXIMAB
     Indication: Renal transplant
     Dosage: 200 MG/DAY, UNKNOWN FREQ.
     Route: 065
  7. CEFTRIAXONE SODIUM [Concomitant]
     Active Substance: CEFTRIAXONE SODIUM
     Indication: Pneumonia pneumococcal
     Dosage: UNK UNK, UNKNOWN FREQ.
     Route: 065
  8. CIPROFLOXACIN [Concomitant]
     Active Substance: CIPROFLOXACIN
     Indication: Pneumonia pneumococcal
     Dosage: UNK UNK, UNKNOWN FREQ.
     Route: 065
  9. ACYCLOVIR [Concomitant]
     Active Substance: ACYCLOVIR
     Indication: Meningitis herpes
     Dosage: UNK UNK, UNKNOWN FREQ.
     Route: 065
  10. VIDARABINE [Concomitant]
     Active Substance: VIDARABINE
     Indication: Product used for unknown indication
     Dosage: UNK UNK, UNKNOWN FREQ.
     Route: 065

REACTIONS (5)
  - Rash vesicular [Fatal]
  - Pneumonia pneumococcal [Fatal]
  - Meningitis herpes [Fatal]
  - Varicella virus test positive [Fatal]
  - Pneumonia herpes viral [Unknown]
